FAERS Safety Report 24784923 (Version 1)
Quarter: 2024Q4

REPORT INFORMATION
  Report Type: Spontaneous
  Country: US (occurrence: US)
  Receive Date: 20241228
  Receipt Date: 20241228
  Transmission Date: 20250114
  Serious: No
  Sender: TEVA
  Company Number: US-TEVA-VS-3274443

PATIENT

DRUGS (1)
  1. AMPHETAMINE AND DEXTROAMPHETAMINE [Suspect]
     Active Substance: AMPHETAMINE\DEXTROAMPHETAMINE
     Indication: Product used for unknown indication
     Route: 065
     Dates: start: 20241206

REACTIONS (5)
  - Insomnia [Unknown]
  - Mydriasis [Unknown]
  - Chest discomfort [Unknown]
  - Disturbance in attention [Unknown]
  - Palpitations [Unknown]

NARRATIVE: CASE EVENT DATE: 20241206
